FAERS Safety Report 6588756-3 (Version None)
Quarter: 2010Q1

REPORT INFORMATION
  Report Type: 
  Country: None (occurrence: None)
  Receive Date: 20100218
  Receipt Date: 20100209
  Transmission Date: 20100710
  Serious: Yes (Other)
  Sender: FDA-Public Use
  Company Number: US-JNJFOC-20100205780

PATIENT
  Age: 23 Year
  Sex: Female
  Weight: 54.89 kg

DRUGS (2)
  1. REMICADE [Suspect]
     Indication: CROHN'S DISEASE
     Route: 042
  2. PREDNISONE [Suspect]
     Indication: CROHN'S DISEASE

REACTIONS (1)
  - WEIGHT INCREASED [None]
